FAERS Safety Report 6234585-X (Version None)
Quarter: 2009Q2

REPORT INFORMATION
  Report Type: 
  Country: None (occurrence: None)
  Receive Date: 20090616
  Receipt Date: 20090616
  Transmission Date: 20091009
  Serious: Yes (Other)
  Sender: FDA-Public Use
  Company Number: None

PATIENT
  Age: 53 Year
  Sex: Male
  Weight: 102.0593 kg

DRUGS (2)
  1. BUPROPION HCL [Suspect]
     Indication: ANXIETY
     Dosage: 450 MG 1 X PER DAY PO
     Route: 048
  2. BUPROPION HCL [Suspect]
     Indication: DEPRESSION
     Dosage: 450 MG 1 X PER DAY PO
     Route: 048

REACTIONS (4)
  - DRUG EFFECT DECREASED [None]
  - LIBIDO DECREASED [None]
  - OFF LABEL USE [None]
  - PRODUCT SUBSTITUTION ISSUE [None]
